FAERS Safety Report 10038435 (Version 3)
Quarter: 2017Q1

REPORT INFORMATION
  Report Type: Spontaneous
  Country: CA (occurrence: CA)
  Receive Date: 20140326
  Receipt Date: 20170220
  Transmission Date: 20170428
  Serious: Yes (Hospitalization, Other)
  Sender: FDA-Public Use
  Company Number: CA-GLAXOSMITHKLINE-A1050517A

PATIENT
  Age: 37 Year
  Sex: Female
  Weight: 84 kg

DRUGS (3)
  1. BENLYSTA [Suspect]
     Active Substance: BELIMUMAB
     Dosage: 820 MG, UNK
  2. BENLYSTA [Suspect]
     Active Substance: BELIMUMAB
     Dosage: 820 MG, UNK
     Dates: start: 20130704
  3. BENLYSTA [Suspect]
     Active Substance: BELIMUMAB
     Indication: SYSTEMIC LUPUS ERYTHEMATOSUS
     Dosage: 880 MG, Z EVERY 4 WEEKS
     Route: 042
     Dates: start: 20120516

REACTIONS (16)
  - Bronchitis [Not Recovered/Not Resolved]
  - Pyrexia [Unknown]
  - Dyspnoea [Recovered/Resolved]
  - Swelling face [Unknown]
  - Gingival swelling [Unknown]
  - Infection [Unknown]
  - Nasopharyngitis [Recovering/Resolving]
  - Vomiting [Unknown]
  - Arthralgia [Unknown]
  - Kidney infection [Recovered/Resolved]
  - Systemic lupus erythematosus [Unknown]
  - Nausea [Unknown]
  - Tooth infection [Unknown]
  - Urinary tract infection [Unknown]
  - Cystitis [Recovered/Resolved]
  - Pain [Unknown]

NARRATIVE: CASE EVENT DATE: 20131111
